FAERS Safety Report 13413364 (Version 2)
Quarter: 2018Q1

REPORT INFORMATION
  Report Type: Spontaneous
  Country: US (occurrence: US)
  Receive Date: 20170406
  Receipt Date: 20180118
  Transmission Date: 20180508
  Serious: No
  Sender: FDA-Public Use
  Company Number: US-JNJFOC-20170312206

PATIENT
  Age: 21 Year
  Sex: Male

DRUGS (7)
  1. RISPERDAL [Suspect]
     Active Substance: RISPERIDONE
     Indication: INTELLECTUAL DISABILITY
     Dosage: VARYING DOSES OF 0.25 MG AND 1 MG
     Route: 048
     Dates: start: 20070822, end: 20130513
  2. RISPERDAL [Suspect]
     Active Substance: RISPERIDONE
     Indication: INTELLECTUAL DISABILITY
     Route: 048
     Dates: start: 20130709, end: 20140218
  3. RISPERDAL [Suspect]
     Active Substance: RISPERIDONE
     Indication: ANXIETY
     Dosage: VARYING DOSES OF 0.25 MG AND 1 MG
     Route: 048
     Dates: start: 20070822, end: 20130513
  4. RISPERIDONE. [Suspect]
     Active Substance: RISPERIDONE
     Indication: ANXIETY
     Dosage: VARYING DOSES OF 2 MG, 1 MG AND 0.5
     Route: 048
     Dates: start: 20080826, end: 20131104
  5. RISPERIDONE. [Suspect]
     Active Substance: RISPERIDONE
     Indication: INTELLECTUAL DISABILITY
     Dosage: VARYING DOSES OF 2 MG, 1 MG AND 0.5
     Route: 048
     Dates: start: 20080826, end: 20131104
  6. RISPERIDONE. [Suspect]
     Active Substance: RISPERIDONE
     Indication: PRODUCT USED FOR UNKNOWN INDICATION
     Route: 048
  7. RISPERDAL [Suspect]
     Active Substance: RISPERIDONE
     Indication: ANXIETY
     Route: 048
     Dates: start: 20130709, end: 20140218

REACTIONS (4)
  - Emotional disorder [Unknown]
  - Off label use [Unknown]
  - Gynaecomastia [Unknown]
  - Product use in unapproved indication [Unknown]

NARRATIVE: CASE EVENT DATE: 20070822
